FAERS Safety Report 7315483-7 (Version None)
Quarter: 2011Q1

REPORT INFORMATION
  Report Type: 
  Country: None (occurrence: None)
  Receive Date: 20110225
  Receipt Date: 20110210
  Transmission Date: 20110831
  Serious: Yes (Death, Hospitalization, Disabling)
  Sender: FDA-Public Use
  Company Number: AU-CELGENEUS-008-50794-11012422

PATIENT
  Sex: Male

DRUGS (2)
  1. VIDAZA [Suspect]
     Route: 050
     Dates: start: 20100607
  2. VIDAZA [Suspect]
     Route: 050
     Dates: start: 20101220

REACTIONS (3)
  - ACUTE MYELOID LEUKAEMIA RECURRENT [None]
  - GRAND MAL CONVULSION [None]
  - DEATH [None]
